FAERS Safety Report 16942768 (Version 2)
Quarter: 2019Q4

REPORT INFORMATION
  Report Type: Report from Study
  Country: IL (occurrence: IL)
  Receive Date: 20191021
  Receipt Date: 20191127
  Transmission Date: 20200122
  Serious: Yes (Other)
  Sender: FDA-Public Use
  Company Number: PHHY2017IL113920

PATIENT
  Age: 4 Year
  Sex: Male
  Weight: 18.8 kg

DRUGS (12)
  1. TRAMETINIB [Suspect]
     Active Substance: TRAMETINIB
     Dosage: 9 ML, QD
     Route: 048
  2. TRAMETINIB [Suspect]
     Active Substance: TRAMETINIB
     Dosage: 5 ML, QD
     Route: 048
  3. TRAMETINIB [Suspect]
     Active Substance: TRAMETINIB
     Dosage: 5 ML, QD
     Route: 048
  4. TRAMETINIB [Suspect]
     Active Substance: TRAMETINIB
     Indication: NEUROFIBROMA
     Dosage: UNK
     Route: 065
     Dates: start: 20160114
  5. TRAMETINIB [Suspect]
     Active Substance: TRAMETINIB
     Dosage: 7 ML, QD
     Route: 048
     Dates: start: 20190718
  6. TRAMETINIB [Suspect]
     Active Substance: TRAMETINIB
     Dosage: 7 ML, QD
     Route: 048
     Dates: start: 20180930
  7. DEPALEPT [Suspect]
     Active Substance: VALPROIC ACID
     Indication: SEIZURE
     Route: 065
  8. VALPROIC ACID. [Concomitant]
     Active Substance: VALPROIC ACID
     Indication: PRODUCT USED FOR UNKNOWN INDICATION
     Route: 065
  9. TRAMETINIB [Suspect]
     Active Substance: TRAMETINIB
     Dosage: 7 ML, QD
     Route: 048
     Dates: start: 20190807
  10. KEPPRA [Concomitant]
     Active Substance: LEVETIRACETAM
     Indication: SEIZURE
     Route: 065
  11. TRAMETINIB [Suspect]
     Active Substance: TRAMETINIB
     Dosage: 7 ML, QD
     Route: 048
     Dates: start: 201809
  12. VITAMIN K [Concomitant]
     Active Substance: PHYTONADIONE
     Indication: LOW DENSITY LIPOPROTEIN ABNORMAL
     Route: 042

REACTIONS (18)
  - Gamma-glutamyltransferase increased [Unknown]
  - Aphthous ulcer [Recovered/Resolved]
  - Mouth ulceration [Unknown]
  - Aspartate aminotransferase increased [Unknown]
  - Pyrexia [Recovered/Resolved]
  - Haematoma [Recovered/Resolved]
  - Blood bilirubin increased [Unknown]
  - Lymphadenopathy [Recovered/Resolved]
  - Stomatitis [Not Recovered/Not Resolved]
  - Infectious mononucleosis [Recovered/Resolved]
  - Asthenia [Recovered/Resolved]
  - Incorrect dose administered [Unknown]
  - Alanine aminotransferase increased [Unknown]
  - Photosensitivity reaction [Not Recovered/Not Resolved]
  - Blood alkaline phosphatase increased [Unknown]
  - Blood lactate dehydrogenase increased [Unknown]
  - Dry skin [Not Recovered/Not Resolved]
  - Epstein-Barr virus infection [Recovered/Resolved]

NARRATIVE: CASE EVENT DATE: 20180909
